FAERS Safety Report 7965072-6 (Version None)
Quarter: 2011Q4

REPORT INFORMATION
  Report Type: 
  Country: None (occurrence: None)
  Receive Date: 20111208
  Receipt Date: 20111202
  Transmission Date: 20120403
  Serious: Yes (Other)
  Sender: FDA-Public Use
  Company Number: BR-BAYER-2011-116067

PATIENT
  Sex: Female

DRUGS (1)
  1. ULTRAVIST 150 [Suspect]
     Indication: PRODUCT USED FOR UNKNOWN INDICATION
     Dosage: UNK
     Dates: start: 20111201, end: 20111201

REACTIONS (5)
  - BLOOD CREATININE INCREASED [None]
  - ERYTHEMA [None]
  - FEELING HOT [None]
  - CARDIAC DISORDER [None]
  - DEHYDRATION [None]
